FAERS Safety Report 5592820-5 (Version None)
Quarter: 2008Q1

REPORT INFORMATION
  Report Type: 
  Country: None (occurrence: None)
  Receive Date: 20080114
  Receipt Date: 20080102
  Transmission Date: 20080703
  Serious: Yes (Hospitalization, Other)
  Sender: FDA-Public Use
  Company Number: US-JNJFOC-20080100642

PATIENT
  Sex: Male

DRUGS (1)
  1. DACOGEN [Suspect]
     Indication: DRUG USE FOR UNKNOWN INDICATION
     Dosage: CYCLE 2 DELAYED

REACTIONS (3)
  - CATHETER RELATED INFECTION [None]
  - CATHETER THROMBOSIS [None]
  - STAPHYLOCOCCAL INFECTION [None]
